FAERS Safety Report 16375024 (Version 1)
Quarter: 2019Q2

REPORT INFORMATION
  Report Type: Spontaneous
  Country: CN (occurrence: CN)
  Receive Date: 20190531
  Receipt Date: 20190531
  Transmission Date: 20190711
  Serious: Yes (Other)
  Sender: FDA-Public Use
  Company Number: CN-009507513-1905CHN010696

PATIENT
  Age: 87 Year
  Sex: Female

DRUGS (1)
  1. ERTAPENEM SODIUM [Suspect]
     Active Substance: ERTAPENEM SODIUM
     Indication: URINARY TRACT INFECTION
     Dosage: 1 GRAM, QD

REACTIONS (8)
  - Loss of consciousness [Recovered/Resolved]
  - Hypokinesia [Recovering/Resolving]
  - Generalised tonic-clonic seizure [Recovered/Resolved]
  - Disorganised speech [Recovering/Resolving]
  - Mental disorder [Recovering/Resolving]
  - Communication disorder [Recovering/Resolving]
  - Hallucination, visual [Recovering/Resolving]
  - Incorrect dose administered [Unknown]
